FAERS Safety Report 5799622-5 (Version None)
Quarter: 2008Q3

REPORT INFORMATION
  Report Type: 
  Country: None (occurrence: None)
  Receive Date: 20080701
  Receipt Date: 20080701
  Transmission Date: 20090109
  Serious: Yes (Life-Threatening)
  Sender: FDA-Public Use
  Company Number: None

PATIENT
  Age: 64 Year
  Sex: Male
  Weight: 69 kg

DRUGS (1)
  1. VARENICLINE [Suspect]
     Dosage: 1MG
     Dates: start: 20080321, end: 20080402

REACTIONS (2)
  - SUICIDAL IDEATION [None]
  - TREATMENT NONCOMPLIANCE [None]
